FAERS Safety Report 9992303 (Version 1)
Quarter: 2014Q1

REPORT INFORMATION
  Report Type: Spontaneous
  Country: US (occurrence: US)
  Receive Date: 20140310
  Receipt Date: 20140310
  Transmission Date: 20141002
  Serious: No
  Sender: FDA-Public Use
  Company Number: US-ASTELLAS-2014US000074

PATIENT
  Sex: Male

DRUGS (1)
  1. XTANDI [Suspect]
     Indication: PROSTATE CANCER
     Dosage: 160 MG, DAILY
     Route: 048
     Dates: start: 20131108

REACTIONS (7)
  - Influenza [Unknown]
  - Cough [Unknown]
  - Pulmonary congestion [Unknown]
  - Nasal congestion [Unknown]
  - Vomiting [Unknown]
  - Chills [Unknown]
  - Diarrhoea [Unknown]
